FAERS Safety Report 5215975-0 (Version None)
Quarter: 2007Q1

REPORT INFORMATION
  Report Type: 
  Country: None (occurrence: None)
  Receive Date: 20070123
  Receipt Date: 20070112
  Transmission Date: 20070707
  Serious: Yes (Disabling)
  Sender: FDA-Public Use
  Company Number: US-SANOFI-SYNTHELABO-A03200700370

PATIENT
  Sex: Male
  Weight: 120.18 kg

DRUGS (3)
  1. TOPROL-XL [Concomitant]
     Route: 048
  2. ZOCOR [Concomitant]
     Route: 048
     Dates: start: 20061117
  3. PLAVIX [Suspect]
     Indication: CAROTID ARTERY OCCLUSION
     Route: 048
     Dates: start: 20061117

REACTIONS (4)
  - ABASIA [None]
  - GOUT [None]
  - HEADACHE [None]
  - MUSCULOSKELETAL STIFFNESS [None]
